FAERS Safety Report 7413543-3 (Version None)
Quarter: 2011Q2

REPORT INFORMATION
  Report Type: 
  Country: None (occurrence: None)
  Receive Date: 20110413
  Receipt Date: 20110410
  Transmission Date: 20111010
  Serious: Yes (Other)
  Sender: FDA-Public Use
  Company Number: DZ-PFIZER INC-2011078748

PATIENT
  Age: 46 Year
  Sex: Female

DRUGS (5)
  1. FELDEN [Concomitant]
  2. LYRICA [Suspect]
     Indication: INTERVERTEBRAL DISC PROTRUSION
  3. PARACETAMOL [Concomitant]
  4. LYRICA [Suspect]
     Indication: NEURALGIA
     Dosage: 50 MG, 2X/DAY
     Dates: start: 20110306, end: 20110310
  5. CELEBREX [Concomitant]

REACTIONS (2)
  - URINARY RETENTION [None]
  - INTERVERTEBRAL DISC PROTRUSION [None]
